FAERS Safety Report 4865315-1 (Version None)
Quarter: 2005Q4

REPORT INFORMATION
  Report Type: 
  Country: None (occurrence: None)
  Receive Date: 20051223
  Receipt Date: 20051221
  Transmission Date: 20060501
  Serious: Yes (Disabling)
  Sender: FDA-Public Use
  Company Number: 2005CG02140

PATIENT
  Age: 35 Year
  Sex: Female

DRUGS (3)
  1. ARIMIDEX [Suspect]
     Indication: BREAST CANCER
     Route: 048
     Dates: start: 20050901, end: 20051218
  2. TAXOTERE [Concomitant]
     Indication: BREAST CANCER
     Dates: start: 20040101
  3. EPIRUBICIN [Concomitant]
     Indication: BREAST CANCER
     Dates: start: 20040101

REACTIONS (2)
  - DRUG TOXICITY [None]
  - OPTIC NEURITIS [None]
